FAERS Safety Report 4620250-9 (Version None)
Quarter: 2005Q1

REPORT INFORMATION
  Report Type: 
  Country: None (occurrence: None)
  Receive Date: 20050321
  Receipt Date: 20050321
  Transmission Date: 20050727
  Serious: Yes (Hospitalization)
  Sender: FDA-Public Use
  Company Number: None

PATIENT
  Sex: Female
  Weight: 85.7298 kg

DRUGS (2)
  1. DOCETAXEL [Suspect]
     Indication: LUNG NEOPLASM MALIGNANT
     Dosage: 75 MG IV X 1
     Route: 042
     Dates: start: 20041221, end: 20050215
  2. CAPECITABINE [Suspect]
     Indication: LUNG NEOPLASM MALIGNANT
     Dosage: 1250 MG PO BID
     Route: 048
     Dates: start: 20041221, end: 20050215

REACTIONS (1)
  - PLEURAL EFFUSION [None]
